FAERS Safety Report 10776322 (Version 1)
Quarter: 2015Q1

REPORT INFORMATION
  Report Type: Spontaneous
  Country: US (occurrence: None)
  Receive Date: 20150205
  Receipt Date: 20150205
  Transmission Date: 20150721
  Serious: Yes (Other)
  Sender: FDA-Public Use
  Company Number: None

PATIENT
  Age: 16 Year
  Sex: Female

DRUGS (2)
  1. METRONIDAZOLE 500MG PLIVA [Suspect]
     Active Substance: METRONIDAZOLE
     Indication: INFECTION PROTOZOAL
     Dosage: 1 TABLET FOUR TIMES A DAY BY MOUTH
     Route: 048
     Dates: start: 20150130, end: 20150203
  2. CHLORHEXADINE [Suspect]
     Active Substance: CHLORHEXIDINE
     Indication: DRUG THERAPY
     Dosage: 15ML EVERY MONDAY EVENING
     Route: 048
     Dates: start: 20150131

REACTIONS (3)
  - Nausea [None]
  - Vomiting [None]
  - Drug interaction [None]

NARRATIVE: CASE EVENT DATE: 20150131
